FAERS Safety Report 8293193-X (Version None)
Quarter: 2012Q2

REPORT INFORMATION
  Report Type: 
  Country: None (occurrence: None)
  Receive Date: 20120417
  Receipt Date: 20111003
  Transmission Date: 20120825
  Serious: No
  Sender: FDA-Public Use
  Company Number: US-ASTRAZENECA-2011SE28790

PATIENT
  Age: 63 Year
  Sex: Female
  Weight: 50.3 kg

DRUGS (5)
  1. CYMBALTA [Concomitant]
     Indication: DEPRESSION
  2. NEXIUM [Suspect]
     Indication: GASTROOESOPHAGEAL REFLUX DISEASE
     Dosage: ONE DAILY
     Route: 048
     Dates: start: 20080101
  3. NEXIUM [Suspect]
     Dosage: DOUBLED THE DOSE
     Route: 048
  4. EVISTA [Concomitant]
     Indication: OSTEOPOROSIS
  5. PRIMIDONE [Concomitant]
     Indication: NEUROPATHY PERIPHERAL

REACTIONS (3)
  - APHTHOUS STOMATITIS [None]
  - DRUG DOSE OMISSION [None]
  - GASTRIC DISORDER [None]
